FAERS Safety Report 9534182 (Version 1)
Quarter: 2013Q3

REPORT INFORMATION
  Report Type: Spontaneous
  Country: US (occurrence: US)
  Receive Date: 20130918
  Receipt Date: 20130918
  Transmission Date: 20140515
  Serious: No
  Sender: FDA-Public Use
  Company Number: US-PURDUE-USA-2011-0079780

PATIENT
  Age: 86 Year
  Sex: Female

DRUGS (2)
  1. BUTRANS [Suspect]
     Indication: PAIN
     Dosage: 5 MCG, Q1H
     Route: 062
     Dates: start: 20110811, end: 20110911
  2. BUTRANS [Suspect]
     Indication: COMPRESSION FRACTURE

REACTIONS (3)
  - Delirium [Recovered/Resolved]
  - Mental status changes [Recovering/Resolving]
  - Confusional state [Recovered/Resolved]
